FAERS Safety Report 4898842-1 (Version None)
Quarter: 2006Q1

REPORT INFORMATION
  Report Type: 
  Country: None (occurrence: None)
  Receive Date: 20060202
  Receipt Date: 20060125
  Transmission Date: 20060701
  Serious: Yes (Death)
  Sender: FDA-Public Use
  Company Number: GB-GLAXOSMITHKLINE-B0408076A

PATIENT
  Sex: Male

DRUGS (3)
  1. ZYBAN [Suspect]
     Dates: start: 20050101
  2. ANTIHISTAMINE [Concomitant]
  3. ANTIDEPRESSANT [Concomitant]

REACTIONS (2)
  - DEATH [None]
  - RASH [None]
